FAERS Safety Report 9003634 (Version 2)
Quarter: 2013Q1

REPORT INFORMATION
  Report Type: Spontaneous
  Country: GB (occurrence: GB)
  Receive Date: 20130108
  Receipt Date: 20130124
  Transmission Date: 20140127
  Serious: Yes (Other)
  Sender: FDA-Public Use
  Company Number: GB-WATSON-2012-23386

PATIENT
  Age: 30 Year
  Sex: Male

DRUGS (2)
  1. PROCHLORPERAZINE EDISYLATE [Suspect]
     Indication: DIZZINESS
     Dosage: 5 MG, Q8H
     Route: 065
  2. OXYCODONE [Concomitant]
     Indication: PRODUCT USED FOR UNKNOWN INDICATION

REACTIONS (7)
  - Wheezing [Recovering/Resolving]
  - Dyskinesia [Unknown]
  - Agitation [Unknown]
  - Restlessness [Unknown]
  - Oedema mouth [Unknown]
  - Somnolence [Unknown]
  - Pain [Unknown]
